FAERS Safety Report 5867220-0 (Version None)
Quarter: 2008Q3

REPORT INFORMATION
  Report Type: 
  Country: None (occurrence: None)
  Receive Date: 20080829
  Receipt Date: 20080829
  Transmission Date: 20090109
  Serious: Yes (Other)
  Sender: FDA-Public Use
  Company Number: None

PATIENT
  Sex: Female

DRUGS (1)
  1. IRON DEXTRAN [Suspect]
     Dosage: 25MG/15ML

REACTIONS (8)
  - BLOOD PRESSURE INCREASED [None]
  - DRUG HYPERSENSITIVITY [None]
  - LIP SWELLING [None]
  - NASAL CONGESTION [None]
  - PALATAL OEDEMA [None]
  - PARAESTHESIA [None]
  - RESPIRATORY RATE INCREASED [None]
  - SNEEZING [None]
